FAERS Safety Report 7971116-8 (Version None)
Quarter: 2011Q4

REPORT INFORMATION
  Report Type: 
  Country: None (occurrence: None)
  Receive Date: 20111212
  Receipt Date: 20111212
  Transmission Date: 20120403
  Serious: Yes (Hospitalization)
  Sender: FDA-Public Use
  Company Number: None

PATIENT
  Age: 39 Year
  Sex: Male

DRUGS (3)
  1. PROPOFOL [Suspect]
  2. TOPEX SPRAY [Concomitant]
  3. MIDAZOLAM [Concomitant]

REACTIONS (1)
  - VISION BLURRED [None]
